FAERS Safety Report 19657268 (Version 1)
Quarter: 2021Q3

REPORT INFORMATION
  Report Type: Spontaneous
  Country: US (occurrence: US)
  Receive Date: 20210804
  Receipt Date: 20210804
  Transmission Date: 20211014
  Serious: No
  Sender: FDA-Public Use
  Company Number: US-CELGENEUS-USA-20210706827

PATIENT
  Age: 60 Year
  Sex: Female

DRUGS (12)
  1. POMALYST [Suspect]
     Active Substance: POMALIDOMIDE
     Dosage: 3 MILLIGRAM
     Route: 048
     Dates: start: 20210630
  2. LEVOTHYROXINE. [Concomitant]
     Active Substance: LEVOTHYROXINE
     Indication: HYPOTHYROIDISM
     Dosage: 75 MILLIGRAM
     Route: 048
  3. POMALYST [Suspect]
     Active Substance: POMALIDOMIDE
     Dosage: 2 MILLIGRAM
     Route: 048
     Dates: start: 201708
  4. AMLODIPINE/BENAZEPRIL [Concomitant]
     Active Substance: AMLODIPINE BESYLATE\BENAZEPRIL HYDROCHLORIDE
     Indication: HYPERTENSION
     Dosage: AMLOD/BENAZ 5/40
     Route: 048
  5. MULTIVITAMIN [Concomitant]
     Active Substance: VITAMINS
     Indication: HYPOVITAMINOSIS
     Dosage: 1 TABLET
     Route: 048
  6. VITAMIN D [Concomitant]
     Active Substance: VITAMIN D NOS
     Indication: HYPOVITAMINOSIS
     Dosage: 1T QD
     Route: 065
  7. HYDROXYCHLOROQUINE [Concomitant]
     Active Substance: HYDROXYCHLOROQUINE
     Indication: SYSTEMIC LUPUS ERYTHEMATOSUS
     Dosage: 2 TABLET
     Route: 048
  8. LINZESS [Concomitant]
     Active Substance: LINACLOTIDE
     Indication: GASTROINTESTINAL DISORDER
     Dosage: 145 MICROGRAM
     Route: 048
  9. POMALYST [Suspect]
     Active Substance: POMALIDOMIDE
     Indication: PLASMA CELL MYELOMA
     Dosage: 4 MILLIGRAM
     Route: 048
     Dates: start: 201703
  10. VIT D [Concomitant]
     Active Substance: VITAMIN D NOS
     Indication: HYPOVITAMINOSIS
     Dosage: 1 TABLET
     Route: 048
  11. POMALYST [Suspect]
     Active Substance: POMALIDOMIDE
     Dosage: 3 MILLIGRAM
     Route: 048
     Dates: start: 202106
  12. DEXAMETHASONE. [Concomitant]
     Active Substance: DEXAMETHASONE
     Indication: PLASMA CELL MYELOMA
     Dosage: 4 MILLIGRAM
     Route: 048

REACTIONS (1)
  - Nasopharyngitis [Recovered/Resolved]

NARRATIVE: CASE EVENT DATE: 202107
